FAERS Safety Report 5859544-8 (Version None)
Quarter: 2008Q3

REPORT INFORMATION
  Report Type: 
  Country: None (occurrence: None)
  Receive Date: 20080827
  Receipt Date: 20080822
  Transmission Date: 20090109
  Serious: Yes (Hospitalization)
  Sender: FDA-Public Use
  Company Number: A0744563A

PATIENT
  Age: 39 Year
  Sex: Male
  Weight: 117.3 kg

DRUGS (1)
  1. AVANDIA [Suspect]
     Dosage: 2MG TWICE PER DAY
     Route: 048
     Dates: start: 20030801, end: 20050101

REACTIONS (2)
  - CARDIAC FAILURE CONGESTIVE [None]
  - CHEST PAIN [None]
